FAERS Safety Report 9711493 (Version 1)
Quarter: 2013Q4

REPORT INFORMATION
  Report Type: Spontaneous
  Country: US (occurrence: None)
  Receive Date: 20131125
  Receipt Date: 20131125
  Transmission Date: 20140711
  Serious: No
  Sender: FDA-Public Use
  Company Number: None

PATIENT
  Age: 39 Year
  Sex: Female
  Weight: 54.43 kg

DRUGS (1)
  1. CIPRO [Suspect]
     Indication: URINARY TRACT INFECTION
     Dosage: 2 PILLS ONCE DAILY TAKEN BY MOUTH?800-160 TAB
     Route: 048
     Dates: start: 20130928, end: 20131006

REACTIONS (10)
  - Pain in extremity [None]
  - Pain in extremity [None]
  - Local swelling [None]
  - Gait disturbance [None]
  - Alopecia [None]
  - Pruritus [None]
  - Insomnia [None]
  - Gingival erythema [None]
  - Gingival bleeding [None]
  - Gingival oedema [None]
